FAERS Safety Report 24797580 (Version 1)
Quarter: 2025Q1

REPORT INFORMATION
  Report Type: Spontaneous
  Country: US (occurrence: US)
  Receive Date: 20250102
  Receipt Date: 20250102
  Transmission Date: 20250409
  Serious: No
  Sender: SANOFI AVENTIS
  Company Number: US-SA-2024SA185952

PATIENT
  Sex: Male

DRUGS (1)
  1. DUPIXENT [Suspect]
     Active Substance: DUPILUMAB
     Indication: Pyoderma
     Dosage: 200 MG, QOW
     Route: 058

REACTIONS (3)
  - Haemorrhage [Unknown]
  - Pain [Unknown]
  - Product use in unapproved indication [Unknown]
